FAERS Safety Report 21838978 (Version 1)
Quarter: 2023Q1

REPORT INFORMATION
  Report Type: Spontaneous
  Country: US (occurrence: None)
  Receive Date: 20230108
  Receipt Date: 20230108
  Transmission Date: 20230418
  Serious: Yes (Hospitalization)
  Sender: FDA-Public Use
  Company Number: None

PATIENT
  Age: 92 Year
  Sex: Male

DRUGS (3)
  1. DONEPEZIL HYDROCHLORIDE [Suspect]
     Active Substance: DONEPEZIL HYDROCHLORIDE
     Indication: Dementia Alzheimer^s type
     Dosage: OTHER FREQUENCY : AM;?
     Route: 048
     Dates: start: 20130206
  2. NIFEDIPINE [Suspect]
     Active Substance: NIFEDIPINE
     Indication: Hypertension
     Dosage: FREQUENCY : AT BEDTIME;?
     Route: 048
     Dates: start: 20190215
  3. HYDROCHLOROTHIAZIDE [Suspect]
     Active Substance: HYDROCHLOROTHIAZIDE

REACTIONS (8)
  - Lethargy [None]
  - Syncope [None]
  - Hypovolaemia [None]
  - Orthostatic intolerance [None]
  - Dehydration [None]
  - Hypophagia [None]
  - COVID-19 [None]
  - Bradycardia [None]

NARRATIVE: CASE EVENT DATE: 20221207
